FAERS Safety Report 7461904-9 (Version None)
Quarter: 2011Q2

REPORT INFORMATION
  Report Type: 
  Country: None (occurrence: None)
  Receive Date: 20110506
  Receipt Date: 20110407
  Transmission Date: 20111010
  Serious: Yes (Other)
  Sender: FDA-Public Use
  Company Number: US-BAYER-201038273NA

PATIENT
  Sex: Female

DRUGS (3)
  1. YASMIN [Suspect]
     Indication: ACNE
  2. DROSPIRENONE AND ETHINYL ESTRADIOL [Suspect]
     Indication: ACNE
  3. YAZ [Suspect]
     Indication: ACNE

REACTIONS (3)
  - CHOLELITHIASIS [None]
  - CHOLECYSTITIS ACUTE [None]
  - INJURY [None]
